FAERS Safety Report 8072835-8 (Version None)
Quarter: 2012Q1

REPORT INFORMATION
  Report Type: 
  Country: None (occurrence: None)
  Receive Date: 20120123
  Receipt Date: 20120109
  Transmission Date: 20120608
  Serious: Yes (Death, Hospitalization)
  Sender: FDA-Public Use
  Company Number: 2012MA000676

PATIENT
  Age: 81 Year
  Sex: Female
  Weight: 51.7101 kg

DRUGS (2)
  1. PAREGORIC LIQUID USP (ALPHARMA) [Suspect]
  2. CODEINE SULFATE [Concomitant]

REACTIONS (2)
  - METABOLIC DISORDER [None]
  - ROAD TRAFFIC ACCIDENT [None]
